FAERS Safety Report 16790431 (Version 1)
Quarter: 2019Q4

REPORT INFORMATION
  Report Type: Spontaneous
  Country: US (occurrence: US)
  Receive Date: 20190909
  Receipt Date: 20190909
  Transmission Date: 20200122
  Serious: Yes (Other)
  Sender: FDA-Public Use
  Company Number: None

PATIENT
  Age: 72 Year
  Sex: Female
  Weight: 81.6 kg

DRUGS (15)
  1. FERUMOXYTOL [Suspect]
     Active Substance: FERUMOXYTOL NON-STOICHIOMETRIC MAGNETITE
     Indication: ANAEMIA
     Dosage: ?          OTHER FREQUENCY:ONCE;?
     Route: 041
     Dates: start: 20190909, end: 20190909
  2. CYCLOBENZAPRINE. [Concomitant]
     Active Substance: CYCLOBENZAPRINE
  3. FUROSEMIDE. [Concomitant]
     Active Substance: FUROSEMIDE
  4. CEFUROXIME. [Concomitant]
     Active Substance: CEFUROXIME
  5. CYANOBALAMIN [Concomitant]
  6. LORATADINE. [Concomitant]
     Active Substance: LORATADINE
  7. MECLIZINE [Concomitant]
     Active Substance: MECLIZINE HYDROCHLORIDE
  8. OMEPRAZOLE. [Concomitant]
     Active Substance: OMEPRAZOLE
  9. FLUOXETINE [Concomitant]
     Active Substance: FLUOXETINE HYDROCHLORIDE
  10. IRBESARTAN. [Concomitant]
     Active Substance: IRBESARTAN
  11. VERAPAMIL [Concomitant]
     Active Substance: VERAPAMIL HYDROCHLORIDE
  12. APIXABAN [Concomitant]
     Active Substance: APIXABAN
  13. CHOLECALCIFEROL [Concomitant]
     Active Substance: CHOLECALCIFEROL
  14. DIGOXIN. [Concomitant]
     Active Substance: DIGOXIN
  15. LEVOTHYROXINE. [Concomitant]
     Active Substance: LEVOTHYROXINE

REACTIONS (2)
  - Seizure [None]
  - Infusion related reaction [None]

NARRATIVE: CASE EVENT DATE: 20190909
